FAERS Safety Report 23321383 (Version 1)
Quarter: 2023Q4

REPORT INFORMATION
  Report Type: Spontaneous
  Country: US (occurrence: US)
  Receive Date: 20231220
  Receipt Date: 20231220
  Transmission Date: 20240109
  Serious: Yes (Hospitalization)
  Sender: FDA-Public Use
  Company Number: US-BIOVITRUM-2023-US-019394

PATIENT
  Age: 5 Month
  Sex: Female

DRUGS (2)
  1. SYNAGIS [Suspect]
     Active Substance: PALIVIZUMAB
     Indication: Product used for unknown indication
     Dosage: THIS IS THE FIRST DOSE
     Dates: start: 20230810
  2. SYNAGIS [Suspect]
     Active Substance: PALIVIZUMAB
     Dosage: THIS IS 4TH DOSE
     Dates: start: 20231114

REACTIONS (1)
  - Respiratory syncytial virus test positive [Recovered/Resolved]
